FAERS Safety Report 16038233 (Version 10)
Quarter: 2021Q2

REPORT INFORMATION
  Report Type: Spontaneous
  Country: US (occurrence: US)
  Receive Date: 20190305
  Receipt Date: 20210430
  Transmission Date: 20210716
  Serious: Yes (Hospitalization)
  Sender: FDA-Public Use
  Company Number: US-VIFOR (INTERNATIONAL) INC.-VIT-2019-01801

PATIENT
  Age: 81 Year
  Sex: Male
  Weight: 108.05 kg

DRUGS (13)
  1. ASPIRIN. [Concomitant]
     Active Substance: ASPIRIN
  2. ATORVASTATIN CALCIUM. [Concomitant]
     Active Substance: ATORVASTATIN CALCIUM
  3. KETOCONAZOLE. [Concomitant]
     Active Substance: KETOCONAZOLE
  4. VELTASSA [Suspect]
     Active Substance: PATIROMER
     Indication: HYPERKALAEMIA
     Route: 048
     Dates: start: 20190212
  5. AMLODIPINE BESYLATE. [Concomitant]
     Active Substance: AMLODIPINE BESYLATE
  6. CONTOUR NEXT ONE [Concomitant]
  7. METANX [Concomitant]
     Active Substance: LEVOMEFOLATE CALCIUM\METHYLCOBALAMIN\PYRIDOXAL PHOSPHATE ANHYDROUS
  8. COENZYME Q10 [Concomitant]
     Active Substance: DIETARY SUPPLEMENT\UBIDECARENONE
  9. LISINOPRIL. [Concomitant]
     Active Substance: LISINOPRIL
  10. VELTASSA [Suspect]
     Active Substance: PATIROMER
     Route: 048
  11. FUROSEMIDE. [Concomitant]
     Active Substance: FUROSEMIDE
  12. CARVEDILOL. [Concomitant]
     Active Substance: CARVEDILOL
  13. METOLAZONE. [Concomitant]
     Active Substance: METOLAZONE

REACTIONS (12)
  - Dyschezia [Not Recovered/Not Resolved]
  - Pain [Not Recovered/Not Resolved]
  - Pneumonia [Unknown]
  - Feeling abnormal [Unknown]
  - Ageusia [Recovered/Resolved]
  - Pruritus [Not Recovered/Not Resolved]
  - Weight decreased [Recovered/Resolved]
  - Decreased appetite [Not Recovered/Not Resolved]
  - Diarrhoea [Unknown]
  - Asthenia [Recovering/Resolving]
  - Dry skin [Not Recovered/Not Resolved]
  - Constipation [Recovered/Resolved]

NARRATIVE: CASE EVENT DATE: 20190225
